FAERS Safety Report 13974066 (Version 3)
Quarter: 2017Q3

REPORT INFORMATION
  Report Type: Report from Study
  Country: CY (occurrence: CY)
  Receive Date: 20170915
  Receipt Date: 20170927
  Transmission Date: 20171128
  Serious: Yes (Hospitalization, Other)
  Sender: FDA-Public Use
  Company Number: CY-ROCHE-1989437

PATIENT
  Age: 73 Year
  Sex: Male

DRUGS (1)
  1. ATEZOLIZUMAB. [Suspect]
     Active Substance: ATEZOLIZUMAB
     Indication: BLADDER TRANSITIONAL CELL CARCINOMA
     Route: 065

REACTIONS (7)
  - Nausea [Unknown]
  - Obstruction gastric [Unknown]
  - Vomiting [Unknown]
  - Small intestinal obstruction [Unknown]
  - Gastric dilatation [Unknown]
  - Lymphatic disorder [Unknown]
  - Dysphagia [Not Recovered/Not Resolved]
